FAERS Safety Report 26024561 (Version 4)
Quarter: 2025Q4

REPORT INFORMATION
  Report Type: Spontaneous
  Country: EU (occurrence: EU)
  Receive Date: 20251111
  Receipt Date: 20251208
  Transmission Date: 20260118
  Serious: Yes (Hospitalization, Disabling, Other)
  Sender: AUROBINDO
  Company Number: EU-BRISTOL-MYERS SQUIBB COMPANY-2025-144070

PATIENT
  Age: 69 Year
  Sex: Female
  Weight: 69 kg

DRUGS (27)
  1. CARBOPLATIN [Suspect]
     Active Substance: CARBOPLATIN
     Indication: Non-small cell lung cancer
     Dosage: UNK (6 AUC - MG/MIN*ML)
  2. CARBOPLATIN [Suspect]
     Active Substance: CARBOPLATIN
     Dosage: UNK (5 AUC - MG/MIN*ML)
  3. CARBOPLATIN [Suspect]
     Active Substance: CARBOPLATIN
     Dosage: UNK (5 AUC - MG/MIN*ML)
  4. PACLITAXEL [Suspect]
     Active Substance: PACLITAXEL
     Indication: Non-small cell lung cancer
     Dosage: 200 MILLIGRAM/SQ. METER
  5. PACLITAXEL [Suspect]
     Active Substance: PACLITAXEL
     Dosage: 160 MILLIGRAM/SQ. METER
  6. PACLITAXEL [Suspect]
     Active Substance: PACLITAXEL
     Dosage: 160 MILLIGRAM/SQ. METER
  7. NIVOLUMAB [Suspect]
     Active Substance: NIVOLUMAB
     Indication: Non-small cell lung cancer
     Dosage: 360 MILLIGRAM, ONCE A DAY
     Dates: start: 20250813
  8. CYANOCOBALAMIN;PYRIDOXINE;THIAMINE [Concomitant]
     Indication: Prophylaxis
     Dosage: 155 MILLIGRAM, ONCE A DAY
     Dates: end: 20250910
  9. FESOTERODINE [Concomitant]
     Active Substance: FESOTERODINE
     Indication: Prophylaxis
     Dosage: 7 MILLIGRAM, ONCE A DAY
     Dates: end: 202508
  10. GABAPENTIN [Concomitant]
     Active Substance: GABAPENTIN
     Indication: Prophylaxis
     Dosage: 600 MILLIGRAM
  11. GABAPENTIN [Concomitant]
     Active Substance: GABAPENTIN
     Indication: Supportive care
  12. METAMIZOL [Concomitant]
     Active Substance: METAMIZOLE SODIUM
     Indication: Prophylaxis
     Dosage: 500 MILLILITER, AS NECESSARY (P.R.N. (AS NEEDED))
  13. METAMIZOL [Concomitant]
     Active Substance: METAMIZOLE SODIUM
     Indication: Supportive care
  14. MIRTAZAPINE [Concomitant]
     Active Substance: MIRTAZAPINE
     Indication: Prophylaxis
     Dosage: 15 MILLIGRAM, 0.5 DAYS
  15. MIRTAZAPINE [Concomitant]
     Active Substance: MIRTAZAPINE
     Indication: Supportive care
  16. ONDANSETRON [Concomitant]
     Active Substance: ONDANSETRON
     Indication: Prophylaxis
     Dosage: 4 MILLIGRAM, AS NECESSARY (P.R.N. (AS NEEDED))
     Dates: start: 202508, end: 20251028
  17. ONDANSETRON [Concomitant]
     Active Substance: ONDANSETRON
     Indication: Supportive care
  18. OXYCODONE [Concomitant]
     Active Substance: OXYCODONE
     Indication: Prophylaxis
     Dosage: 5 MILLIGRAM, AS NECESSARY (P.R.N. (AS NEEDED))
     Dates: end: 202508
  19. OXYCODONE [Concomitant]
     Active Substance: OXYCODONE
     Indication: Supportive care
     Dosage: 40 MILLIGRAM
  20. PANTOPRAZOLE [Concomitant]
     Active Substance: PANTOPRAZOLE
     Indication: Prophylaxis
     Dosage: 40 MILLIGRAM, ONCE A DAY
  21. PANTOPRAZOLE [Concomitant]
     Active Substance: PANTOPRAZOLE
     Indication: Supportive care
  22. ALBUTEROL [Concomitant]
     Active Substance: ALBUTEROL
     Indication: Prophylaxis
     Dosage: 0.1 MILLIGRAM, AS NECESSARY (P.R.N. (AS NEEDED))
  23. ALBUTEROL [Concomitant]
     Active Substance: ALBUTEROL
     Indication: Supportive care
  24. SOLIFENACIN [Concomitant]
     Active Substance: SOLIFENACIN
     Indication: Prophylaxis
     Dosage: 3.77 MILLIGRAM, 0.5 DAYS
  25. SOLIFENACIN [Concomitant]
     Active Substance: SOLIFENACIN
     Indication: Supportive care
  26. OLODATEROL HYDROCHLORIDE\TIOTROPIUM BROMIDE MONOHYDRATE [Concomitant]
     Active Substance: OLODATEROL HYDROCHLORIDE\TIOTROPIUM BROMIDE MONOHYDRATE
     Indication: Prophylaxis
     Dosage: 5 MICROGRAM, ONCE A DAY
  27. OLODATEROL HYDROCHLORIDE\TIOTROPIUM BROMIDE MONOHYDRATE [Concomitant]
     Active Substance: OLODATEROL HYDROCHLORIDE\TIOTROPIUM BROMIDE MONOHYDRATE
     Indication: Supportive care

REACTIONS (14)
  - Dizziness [Not Recovered/Not Resolved]
  - Gait disturbance [Not Recovered/Not Resolved]
  - Visual impairment [Not Recovered/Not Resolved]
  - Hypertension [Not Recovered/Not Resolved]
  - Blindness unilateral [Unknown]
  - Hyperthyroidism [Not Recovered/Not Resolved]
  - Immune-mediated hyperthyroidism [Not Recovered/Not Resolved]
  - Sicca syndrome [Unknown]
  - Lenticular opacities [Unknown]
  - Metastases to lung [Unknown]
  - Pulmonary embolism [Not Recovered/Not Resolved]
  - Pain in extremity [Not Recovered/Not Resolved]
  - Eyelid ptosis [Unknown]
  - Lung consolidation [Not Recovered/Not Resolved]

NARRATIVE: CASE EVENT DATE: 20250101
